FAERS Safety Report 8851353 (Version 2)
Quarter: 2012Q4

REPORT INFORMATION
  Report Type: 
  Country: US (occurrence: US)
  Receive Date: 20121022
  Receipt Date: 20121217
  Transmission Date: 20130627
  Serious: Yes (Hospitalization, Other)
  Sender: FDA-Public Use
  Company Number: US-AMGEN-USASP2012066442

PATIENT
  Sex: Male

DRUGS (1)
  1. ENBREL [Suspect]
     Indication: RHEUMATOID ARTHRITIS
     Dosage: 50 mg, qwk
     Dates: start: 200410, end: 201208

REACTIONS (4)
  - Pulmonary mass [Unknown]
  - Bacterial abscess central nervous system [Unknown]
  - Drug eruption [Unknown]
  - Tooth disorder [Unknown]
